FAERS Safety Report 18367847 (Version 3)
Quarter: 2020Q4

REPORT INFORMATION
  Report Type: Report from Study
  Country: CO (occurrence: CO)
  Receive Date: 20201009
  Receipt Date: 20201124
  Transmission Date: 20210114
  Serious: Yes (Death, Hospitalization)
  Sender: FDA-Public Use
  Company Number: CO-JNJFOC-20200804002

PATIENT
  Age: 64 Year
  Sex: Female
  Weight: 95 kg

DRUGS (8)
  1. RISPERDAL CONSTA [Suspect]
     Active Substance: RISPERIDONE
  2. CLOZAPINE. [Concomitant]
     Active Substance: CLOZAPINE
     Indication: PRODUCT USED FOR UNKNOWN INDICATION
     Dosage: 1 IN THE NIGHT
     Route: 065
  3. METFORMINE [Concomitant]
     Active Substance: METFORMIN HYDROCHLORIDE
  4. RISPERDAL CONSTA [Suspect]
     Active Substance: RISPERIDONE
     Indication: SCHIZOPHRENIA
     Dosage: LAST ADMINISTRATION WAS ON 29-SEP-2020
     Route: 030
     Dates: start: 20140512
  5. ENALAPRIL [Concomitant]
     Active Substance: ENALAPRIL
  6. RISPERDAL CONSTA [Suspect]
     Active Substance: RISPERIDONE
     Route: 030
     Dates: start: 20200701
  7. RISPERDAL CONSTA [Suspect]
     Active Substance: RISPERIDONE
  8. FLUOXETINE [Concomitant]
     Active Substance: FLUOXETINE HYDROCHLORIDE
     Indication: PRODUCT USED FOR UNKNOWN INDICATION
     Dosage: 1 IN THE MORNING AND ANOTHER IN THE MIDDLE DAY
     Route: 065

REACTIONS (6)
  - Colon cancer [Fatal]
  - Pulmonary embolism [Unknown]
  - Anal incontinence [Not Recovered/Not Resolved]
  - Cerebrovascular accident [Fatal]
  - Urinary incontinence [Not Recovered/Not Resolved]
  - Anaemia [Unknown]

NARRATIVE: CASE EVENT DATE: 2018
